FAERS Safety Report 13427522 (Version 1)
Quarter: 2017Q2

REPORT INFORMATION
  Report Type: Spontaneous
  Country: NL (occurrence: NL)
  Receive Date: 20170411
  Receipt Date: 20170411
  Transmission Date: 20170830
  Serious: Yes (Other)
  Sender: FDA-Public Use
  Company Number: NL-GLAXOSMITHKLINE-NL2017GSK049217

PATIENT
  Age: 71 Year
  Sex: Female

DRUGS (12)
  1. NUCALA [Suspect]
     Active Substance: MEPOLIZUMAB
     Indication: ASTHMA
     Dosage: UNK
     Dates: start: 2016
  2. ALVESCO [Concomitant]
     Active Substance: CICLESONIDE
     Dosage: 320 UNK, BID
  3. OMEPRAZOL [Concomitant]
     Active Substance: OMEPRAZOLE
     Dosage: 40 MG, QD
  4. FORADIL [Concomitant]
     Active Substance: FORMOTEROL FUMARATE
     Dosage: 12 UNK, UNK
  5. SALBUTAMOL [Concomitant]
     Active Substance: ALBUTEROL
     Dosage: 100 UNK, VA
  6. DICLOFENAC [Concomitant]
     Active Substance: DICLOFENAC
     Dosage: 50 MG, VA
  7. MAGNESIUM [Concomitant]
     Active Substance: MAGNESIUM
     Dosage: UNK
  8. NITROFURANTOINE [Concomitant]
     Dosage: 100 MG, QD
  9. ALENDRONIC ACID [Concomitant]
     Active Substance: ALENDRONIC ACID
     Dosage: 70 MG, WE
  10. COLECALCIFEROL [Concomitant]
     Active Substance: CHOLECALCIFEROL
     Dosage: 800 IU, QD
  11. FLUVASTATIN [Concomitant]
     Active Substance: FLUVASTATIN SODIUM
     Dosage: 40 MG, QD
  12. FLUTICASONE. [Concomitant]
     Active Substance: FLUTICASONE
     Dosage: 100 MG, BID

REACTIONS (2)
  - Myalgia [Recovering/Resolving]
  - Arrhythmia [Recovering/Resolving]

NARRATIVE: CASE EVENT DATE: 201702
